FAERS Safety Report 9841461 (Version 1)
Quarter: 2014Q1

REPORT INFORMATION
  Report Type: Spontaneous
  Country: US (occurrence: US)
  Receive Date: 20140124
  Receipt Date: 20140124
  Transmission Date: 20141002
  Serious: Yes (Hospitalization)
  Sender: FDA-Public Use
  Company Number: US-BAYER-2014-010184

PATIENT
  Age: 36 Year
  Sex: Male

DRUGS (12)
  1. ALKA-SELTZER ORIGINAL [Suspect]
     Route: 048
  2. ACETYLSALICYLIC ACID (} 100 MG) [Suspect]
     Indication: IMMUNE TOLERANCE INDUCTION
     Dosage: RAPID DESENSITIZATION PROTOCOL WITH ASPIRIN DOSED EVERY 15 MINUTES
  3. ACETYLSALICYLIC ACID (} 100 MG) [Suspect]
     Indication: IMMUNE TOLERANCE INDUCTION
     Dosage: 60 MG, ONCE
     Route: 048
  4. ACETYLSALICYLIC ACID (} 100 MG) [Suspect]
     Indication: IMMUNE TOLERANCE INDUCTION
     Dosage: 60 MG, ONCE
     Route: 048
  5. ACETYLSALICYLIC ACID (} 100 MG) [Suspect]
     Indication: IMMUNE TOLERANCE INDUCTION
     Dosage: 150 MG, ONCE
     Route: 048
  6. ACETYLSALICYLIC ACID (} 100 MG) [Suspect]
     Indication: IMMUNE TOLERANCE INDUCTION
     Dosage: 300 MG, ONCE
     Route: 048
  7. ACETYLSALICYLIC ACID (} 100 MG) [Suspect]
     Indication: IMMUNE TOLERANCE INDUCTION
     Dosage: 650 MG, HS
     Route: 048
  8. ACETYLSALICYLIC ACID (} 100 MG) [Suspect]
     Indication: IMMUNE TOLERANCE INDUCTION
     Dosage: 650 MG, BID
     Route: 048
  9. KETOROLAC [Suspect]
     Indication: IMMUNE TOLERANCE INDUCTION
  10. MONTELUKAST [Concomitant]
     Indication: IMMUNE TOLERANCE INDUCTION
     Dosage: DAILY DOSE 10 MG
  11. FORMOTEROL [Concomitant]
  12. MOMETASONE [Concomitant]

REACTIONS (5)
  - Analgesic asthma syndrome [None]
  - Analgesic asthma syndrome [Recovering/Resolving]
  - Drug hypersensitivity [None]
  - Forced expiratory volume decreased [Recovered/Resolved]
  - Urticaria [Recovered/Resolved]
